FAERS Safety Report 4337471-5 (Version None)
Quarter: 2004Q2

REPORT INFORMATION
  Report Type: 
  Country: None (occurrence: None)
  Receive Date: 20040413
  Receipt Date: 20040413
  Transmission Date: 20050107
  Serious: Yes (Hospitalization)
  Sender: FDA-Public Use
  Company Number: None

PATIENT
  Sex: Male
  Weight: 97.3 kg

DRUGS (2)
  1. GEMCITABINE [Suspect]
     Indication: CHEMOTHERAPY
     Dosage: 1000 MG/M2 IV DAYS 1,8 EVERY 21 DAYS
     Route: 042
  2. TAXOTERE [Suspect]
     Indication: CHEMOTHERAPY
     Dosage: 40MG/M2 IV DAYS 1,8, EVERY 21 DAYS
     Route: 042

REACTIONS (7)
  - BRONCHIAL OBSTRUCTION [None]
  - DIVERTICULUM [None]
  - DYSPNOEA [None]
  - GASTROINTESTINAL HAEMORRHAGE [None]
  - HAEMORRHOIDS [None]
  - MALIGNANT NEOPLASM PROGRESSION [None]
  - PLEURAL EFFUSION [None]
